FAERS Safety Report 23454790 (Version 1)
Quarter: 2024Q1

REPORT INFORMATION
  Report Type: Spontaneous
  Country: FR (occurrence: FR)
  Receive Date: 20240130
  Receipt Date: 20240130
  Transmission Date: 20240410
  Serious: Yes (Other)
  Sender: FDA-Public Use
  Company Number: FR-TEO-20221486

PATIENT
  Sex: Male

DRUGS (60)
  1. AMOXICILLIN\CLAVULANIC ACID [Suspect]
     Active Substance: AMOXICILLIN\CLAVULANIC ACID
     Indication: Product used for unknown indication
     Dosage: 1 DF MORNING, NOON AND EVENING
     Route: 065
     Dates: start: 20160616
  2. ACUPAN [Suspect]
     Active Substance: NEFOPAM HYDROCHLORIDE
     Indication: Product used for unknown indication
     Dosage: 1 AMPOULE 3 TIMES A DAY
     Route: 065
     Dates: start: 20170904
  3. ACUPAN [Suspect]
     Active Substance: NEFOPAM HYDROCHLORIDE
     Dosage: 1 AMPOULE 3 TIMES A DAY
     Route: 065
     Dates: start: 20180212
  4. ACUPAN [Suspect]
     Active Substance: NEFOPAM HYDROCHLORIDE
     Dosage: 1 AMPOULE 3 TIMES A DAY
     Route: 065
     Dates: start: 20180426
  5. ACUPAN [Suspect]
     Active Substance: NEFOPAM HYDROCHLORIDE
     Dosage: 1 AMPOULE 3 TIMES A DAY
     Route: 065
     Dates: start: 20180828
  6. ACUPAN [Suspect]
     Active Substance: NEFOPAM HYDROCHLORIDE
     Dosage: 1 AMPOULE 3 TIMES A DAY
     Route: 065
     Dates: start: 20180904
  7. ACUPAN [Suspect]
     Active Substance: NEFOPAM HYDROCHLORIDE
     Dosage: 1 AMPOULE 3 TIMES A DAY
     Route: 065
     Dates: start: 20190307
  8. ACUPAN [Suspect]
     Active Substance: NEFOPAM HYDROCHLORIDE
     Dosage: 1 AMPOULE 3 TIMES A DAY
     Route: 065
     Dates: start: 20190520
  9. ACUPAN [Suspect]
     Active Substance: NEFOPAM HYDROCHLORIDE
     Dosage: 1 AMPOULE 3 TIMES A DAY
     Route: 065
     Dates: start: 20190903
  10. ACUPAN [Suspect]
     Active Substance: NEFOPAM HYDROCHLORIDE
     Dosage: 1 AMPOULE 3 TIMES A DAY
     Route: 065
     Dates: start: 20200504
  11. ACUPAN [Suspect]
     Active Substance: NEFOPAM HYDROCHLORIDE
     Dosage: 1 AMPOULE 3 TIMES A DAY
     Route: 065
     Dates: start: 20200917
  12. ACUPAN [Suspect]
     Active Substance: NEFOPAM HYDROCHLORIDE
     Dosage: 1 AMPOULE 3 TIMES A DAY AR 2 FOIS
     Route: 065
     Dates: start: 20181129
  13. ACUPAN [Suspect]
     Active Substance: NEFOPAM HYDROCHLORIDE
     Dosage: 1 AMPOULE 3X4 TIMES A DAY
     Route: 065
     Dates: start: 20200120
  14. ACUPAN [Suspect]
     Active Substance: NEFOPAM HYDROCHLORIDE
     Dosage: UNKNOWN DOSAGE 3 TIMES A DAY
     Route: 065
     Dates: start: 20180109
  15. ACUPAN [Suspect]
     Active Substance: NEFOPAM HYDROCHLORIDE
     Dosage: UNKNOWN DOSAGE 3 TIMES A DAY
     Route: 065
     Dates: start: 20180523
  16. AUGMENTIN [Suspect]
     Active Substance: AMOXICILLIN\CLAVULANATE POTASSIUM
     Indication: Product used for unknown indication
     Dosage: SACHET 1 MORNING, 1 NOON AND 1 EVENING (1 G/125 MG AD, PDR PR SUSP BUV)
     Route: 065
     Dates: start: 20160622
  17. AUGMENTIN [Suspect]
     Active Substance: AMOXICILLIN\CLAVULANATE POTASSIUM
     Dosage: UNK
     Route: 065
  18. PIROXICAM BETADEX [Suspect]
     Active Substance: PIROXICAM BETADEX
     Indication: Product used for unknown indication
     Dosage: 1 TABLET/DIE
     Route: 065
     Dates: start: 20160722
  19. PIROXICAM BETADEX [Suspect]
     Active Substance: PIROXICAM BETADEX
     Dosage: 1 TABLET/DIE
     Route: 065
     Dates: start: 20160704
  20. INDOMETHACIN [Suspect]
     Active Substance: INDOMETHACIN
     Indication: Product used for unknown indication
     Dosage: 3 DF,1 AMPOULE 3 TIMES A DAY
     Route: 065
     Dates: start: 20190520
  21. CYMBALTA [Suspect]
     Active Substance: DULOXETINE HYDROCHLORIDE
     Indication: Product used for unknown indication
     Dosage: 3 DF
     Route: 065
     Dates: start: 20160616
  22. DAFALGAN [Suspect]
     Active Substance: ACETAMINOPHEN
     Indication: Product used for unknown indication
     Dosage: 1G 3 TIMES A DAY
     Route: 065
     Dates: start: 20160704
  23. DAFALGAN [Suspect]
     Active Substance: ACETAMINOPHEN
     Dosage: 1G 3 TIMES A DAY
     Route: 065
     Dates: start: 20160722
  24. DAFALGAN [Suspect]
     Active Substance: ACETAMINOPHEN
     Dosage: 1G 3 TIMES A DAY
     Route: 065
     Dates: start: 20160818
  25. DAFALGAN [Suspect]
     Active Substance: ACETAMINOPHEN
     Dosage: 1G 3 TIMES A DAY
     Route: 065
     Dates: start: 20170529
  26. DOLIPRANE [Suspect]
     Active Substance: ACETAMINOPHEN
     Dosage: 1 G 4 TIMES A DAY
     Route: 065
     Dates: start: 20201228
  27. DOLIPRANE [Suspect]
     Active Substance: ACETAMINOPHEN
     Dosage: 1 G 4 TIMES A DAY. A RENOUVELER 6 MOIS
     Route: 065
     Dates: start: 20210421
  28. DOLIPRANE [Suspect]
     Active Substance: ACETAMINOPHEN
     Dosage: 1 G 4 TIMES A DAY. A RENOUVELER 6 MOIS
     Route: 065
     Dates: start: 20210917
  29. DOLIPRANE [Suspect]
     Active Substance: ACETAMINOPHEN
     Dosage: 1 G 4 TIMES A DAY. A RENOUVELER 6 MOIS
     Route: 065
     Dates: start: 20220201
  30. DOLIPRANE [Suspect]
     Active Substance: ACETAMINOPHEN
     Dosage: 1 GRAM 4 TIMES A DAY
     Route: 065
     Dates: start: 20200818
  31. DOLIPRANE [Suspect]
     Active Substance: ACETAMINOPHEN
     Dosage: 1 G 6 TIMES A MONTH
     Route: 065
     Dates: start: 20200917
  32. DOLIPRANE [Suspect]
     Active Substance: ACETAMINOPHEN
     Indication: Product used for unknown indication
     Dosage: 2 CAPSULES 4 TIMES A DAY
     Route: 065
     Dates: start: 20160622
  33. TOPIRAMATE [Suspect]
     Active Substance: TOPIRAMATE
     Indication: Product used for unknown indication
     Dosage: 15 MG IN THE MORNING AND 15 MG IN THE EVENING A R 3 FOIS.
     Route: 065
     Dates: start: 20200120
  34. ESOMEPRAZOLE [Suspect]
     Active Substance: ESOMEPRAZOLE
     Indication: Product used for unknown indication
     Dosage: 1 CP/DIE
     Route: 065
     Dates: start: 20170104
  35. ACETAMINOPHEN\CODEINE PHOSPHATE [Suspect]
     Active Substance: ACETAMINOPHEN\CODEINE PHOSPHATE
     Indication: Product used for unknown indication
     Dosage: NOT ASSOCIATE WITH DOLIPRANE
     Route: 065
     Dates: start: 20160622
  36. ACETAMINOPHEN\CAFFEINE\OPIUM [Suspect]
     Active Substance: ACETAMINOPHEN\CAFFEINE\OPIUM
     Indication: Product used for unknown indication
     Dosage: 4 CAPSULES/DIE
     Route: 065
     Dates: start: 20161208
  37. AMITRIPTYLINE HYDROCHLORIDE [Suspect]
     Active Substance: AMITRIPTYLINE HYDROCHLORIDE
     Indication: Product used for unknown indication
     Dosage: 0.5 TABLET AT BEDTIME
     Route: 048
     Dates: start: 20170104
  38. AMITRIPTYLINE HYDROCHLORIDE [Suspect]
     Active Substance: AMITRIPTYLINE HYDROCHLORIDE
     Dosage: 1 TABLET AT BEDTIME
     Route: 048
     Dates: start: 20170111
  39. AMITRIPTYLINE HYDROCHLORIDE [Suspect]
     Active Substance: AMITRIPTYLINE HYDROCHLORIDE
     Indication: Product used for unknown indication
     Dosage: 0.5-1 DOSAGE FORM IN THE MORNING
     Route: 065
     Dates: start: 20201228
  40. AMITRIPTYLINE HYDROCHLORIDE [Suspect]
     Active Substance: AMITRIPTYLINE HYDROCHLORIDE
     Indication: Product used for unknown indication
     Dosage: 0.5-1 DOSAGE FORM IN THE MORNING
     Route: 065
     Dates: start: 20210917
  41. ACETAMINOPHEN [Suspect]
     Active Substance: ACETAMINOPHEN
     Indication: Product used for unknown indication
     Route: 065
     Dates: start: 20160616
  42. KETOPROFEN [Suspect]
     Active Substance: KETOPROFEN
     Indication: Product used for unknown indication
     Dosage: 2 CAPSULES/DIE
     Route: 065
     Dates: start: 20170104
  43. PROPRANOLOL [Suspect]
     Active Substance: PROPRANOLOL HYDROCHLORIDE
     Dosage: 1 TABLET IN THE MORNING
     Route: 065
     Dates: start: 20220201
  44. PROPRANOLOL [Suspect]
     Active Substance: PROPRANOLOL HYDROCHLORIDE
     Indication: Product used for unknown indication
     Dosage: 0.5-1 DOSAGE FORM IN THE MORNING
     Route: 065
     Dates: start: 20201228
  45. PROPRANOLOL [Suspect]
     Active Substance: PROPRANOLOL HYDROCHLORIDE
     Dosage: 0.5-1 DOSAGE FORM IN THE MORNING
     Route: 065
     Dates: start: 20210917
  46. METHYLPREDNISOLONE SODIUM SUCCINATE [Suspect]
     Active Substance: METHYLPREDNISOLONE SODIUM SUCCINATE
     Indication: Product used for unknown indication
     Dosage: 4 DOSAGE FORM
     Route: 065
     Dates: start: 20160617
  47. CYAMEMAZINE [Suspect]
     Active Substance: CYAMEMAZINE
     Indication: Product used for unknown indication
     Dosage: 30 DROPS IN THE EVENING
     Route: 065
     Dates: start: 20210421
  48. CYAMEMAZINE [Suspect]
     Active Substance: CYAMEMAZINE
     Indication: Product used for unknown indication
     Dosage: UNK
     Route: 065
     Dates: start: 20160622
  49. TRAMADOL HYDROCHLORIDE [Suspect]
     Active Substance: TRAMADOL HYDROCHLORIDE
     Indication: Product used for unknown indication
     Dosage: 1 CP MORNING AND EVENING
     Route: 065
     Dates: start: 20170529
  50. TRAMADOL HYDROCHLORIDE [Suspect]
     Active Substance: TRAMADOL HYDROCHLORIDE
     Dosage: 1 CP MORNING, NOON AND EVENING
     Route: 065
     Dates: start: 20160704
  51. TRAMADOL HYDROCHLORIDE [Suspect]
     Active Substance: TRAMADOL HYDROCHLORIDE
     Dosage: 1 CP MORNING, NOON AND EVENING
     Route: 065
     Dates: start: 20160818
  52. TRAMADOL HYDROCHLORIDE [Suspect]
     Active Substance: TRAMADOL HYDROCHLORIDE
     Dosage: 1 CP MORNING, NOON AND EVENING
     Route: 065
     Dates: start: 20161004
  53. TRAMADOL HYDROCHLORIDE [Suspect]
     Active Substance: TRAMADOL HYDROCHLORIDE
     Dosage: 1 CP MORNING, NOON AND EVENING (LP 100 TRAMADOL)
     Route: 065
     Dates: start: 20160722
  54. TRAMADOL [Suspect]
     Active Substance: TRAMADOL\TRAMADOL HYDROCHLORIDE
     Indication: Product used for unknown indication
     Dosage: 1 CAPSULE/DIE
     Route: 065
     Dates: start: 20160616
  55. TRAMADOL [Suspect]
     Active Substance: TRAMADOL\TRAMADOL HYDROCHLORIDE
     Indication: Product used for unknown indication
     Dosage: 50 MG
     Route: 065
  56. ZOPICLONE [Suspect]
     Active Substance: ZOPICLONE
     Dosage: 1 DOSAGE FORM BEFORE BEDTIME. A R 2/FOIS
     Route: 065
     Dates: start: 20220121
  57. ZOPICLONE [Suspect]
     Active Substance: ZOPICLONE
     Dosage: 1 DOSAGE FORM BEFORE BEDTIME. A R 3/FOIS
     Route: 065
     Dates: start: 20210930
  58. ZOPICLONE [Suspect]
     Active Substance: ZOPICLONE
     Dosage: 1 DOSAGE FORM BEFORE BEDTIME. A RENOUVELER 2/FOIS
     Route: 065
     Dates: start: 20220408
  59. ZOPICLONE [Suspect]
     Active Substance: ZOPICLONE
     Dosage: 1 TABLET BEFORE BEDTIME
     Route: 065
     Dates: start: 20220110
  60. ZOPICLONE [Suspect]
     Active Substance: ZOPICLONE
     Indication: Product used for unknown indication
     Dosage: 1 TABLET BEFORE BEDTIME. A RENOUVELER 6/MOIS
     Route: 065
     Dates: start: 20201228

REACTIONS (3)
  - Depression [Not Recovered/Not Resolved]
  - Diffuse axonal injury [Not Recovered/Not Resolved]
  - Amyotrophy [Not Recovered/Not Resolved]
